FAERS Safety Report 21644027 (Version 1)
Quarter: 2022Q4

REPORT INFORMATION
  Report Type: Spontaneous
  Country: PT (occurrence: None)
  Receive Date: 20221125
  Receipt Date: 20221125
  Transmission Date: 20230113
  Serious: Yes (Disabling, Other)
  Sender: FDA-Public Use
  Company Number: 2022A386194

PATIENT
  Age: 52 Year
  Sex: Male

DRUGS (1)
  1. ROSUVASTATIN [Suspect]
     Active Substance: ROSUVASTATIN
     Route: 048

REACTIONS (6)
  - Myalgia [Unknown]
  - Skin lesion [Unknown]
  - Cyanosis [Unknown]
  - Arthralgia [Unknown]
  - Asthenia [Unknown]
  - Dermatomyositis [Unknown]
